FAERS Safety Report 5890356-5 (Version None)
Quarter: 2008Q3

REPORT INFORMATION
  Report Type: 
  Country: None (occurrence: None)
  Receive Date: 20080918
  Receipt Date: 20080912
  Transmission Date: 20090109
  Serious: Yes (Death)
  Sender: FDA-Public Use
  Company Number: 2008SP018889

PATIENT
  Age: 51 Year
  Sex: Male

DRUGS (2)
  1. PEG-INTRON [Suspect]
     Indication: HEPATITIS C
     Dosage: 120 MCG; QW
  2. REBETOL [Suspect]
     Indication: HEPATITIS C
     Dosage: 400 MG; QAM; PO, 600 MG; QPM; PO
     Route: 048

REACTIONS (1)
  - DEATH [None]
